FAERS Safety Report 20991203 (Version 2)
Quarter: 2022Q3

REPORT INFORMATION
  Report Type: Spontaneous
  Country: IT (occurrence: IT)
  Receive Date: 20220622
  Receipt Date: 20220702
  Transmission Date: 20221027
  Serious: Yes (Other)
  Sender: FDA-Public Use
  Company Number: IT-MLMSERVICE-20220607-3596307-1

PATIENT
  Age: 51 Year
  Sex: Female

DRUGS (3)
  1. LAMOTRIGINE [Suspect]
     Active Substance: LAMOTRIGINE
     Indication: Trigeminal neuralgia
     Dosage: 100 MILLIGRAM, TWO TIMES A DAY
     Route: 065
  2. CARBAMAZEPINE [Suspect]
     Active Substance: CARBAMAZEPINE
     Indication: Trigeminal neuralgia
     Dosage: 400 MILLIGRAM, 3 TIMES A DAY
     Route: 065
  3. TAPENTADOL [Suspect]
     Active Substance: TAPENTADOL
     Indication: Trigeminal neuralgia
     Dosage: 200 MILLIGRAM, TWO TIMES A DAY
     Route: 065

REACTIONS (7)
  - Loss of personal independence in daily activities [Recovering/Resolving]
  - Somnolence [Unknown]
  - Quality of life decreased [Recovering/Resolving]
  - Depression [Unknown]
  - Dizziness [Unknown]
  - Confusional state [Unknown]
  - Drug ineffective [Unknown]
